FAERS Safety Report 22691662 (Version 5)
Quarter: 2024Q2

REPORT INFORMATION
  Report Type: Spontaneous
  Country: ES (occurrence: ES)
  Receive Date: 20230711
  Receipt Date: 20240613
  Transmission Date: 20240716
  Serious: Yes (Other)
  Sender: FDA-Public Use
  Company Number: ES-JNJFOC-20220155267

PATIENT
  Sex: Female

DRUGS (2)
  1. ARIPIPRAZOLE [Suspect]
     Active Substance: ARIPIPRAZOLE
     Indication: Product used for unknown indication
     Dosage: UNK
     Route: 065
  2. PALIPERIDONE PALMITATE [Suspect]
     Active Substance: PALIPERIDONE PALMITATE
     Indication: Psychotic disorder
     Dosage: UNK
     Route: 030
     Dates: end: 20211213

REACTIONS (17)
  - Terminal state [Unknown]
  - Mental impairment [Unknown]
  - Insomnia [Not Recovered/Not Resolved]
  - Suicide attempt [Not Recovered/Not Resolved]
  - Brain fog [Not Recovered/Not Resolved]
  - Bedridden [Unknown]
  - Anhedonia [Unknown]
  - Cerebral disorder [Not Recovered/Not Resolved]
  - Emotional poverty [Unknown]
  - Nightmare [Unknown]
  - Psychotic disorder [Recovered/Resolved]
  - Gait disturbance [Unknown]
  - Cough [Unknown]
  - Libido decreased [Not Recovered/Not Resolved]
  - Disturbance in attention [Unknown]
  - Vomiting [Unknown]
  - Akathisia [Recovered/Resolved]

NARRATIVE: CASE EVENT DATE: 20211013
